FAERS Safety Report 6356358-X (Version None)
Quarter: 2009Q3

REPORT INFORMATION
  Report Type: 
  Country: None (occurrence: None)
  Receive Date: 20090915
  Receipt Date: 20090907
  Transmission Date: 20100115
  Serious: Yes (Other)
  Sender: FDA-Public Use
  Company Number: GB-PFIZER INC-2009247796

PATIENT

DRUGS (1)
  1. PHENYTOIN SODIUM CAP [Suspect]
     Dosage: 300 MG, UNK
     Route: 048
     Dates: start: 20090101

REACTIONS (1)
  - CONVULSION [None]
